FAERS Safety Report 5424053-7 (Version None)
Quarter: 2007Q3

REPORT INFORMATION
  Report Type: 
  Country: None (occurrence: None)
  Receive Date: 20070727
  Receipt Date: 20061018
  Transmission Date: 20080115
  Serious: Yes (Hospitalization)
  Sender: FDA-Public Use
  Company Number: THYM-11109

PATIENT
  Age: 57 Year
  Sex: Male
  Weight: 109.7705 kg

DRUGS (14)
  1. THYMOGLOBULIN [Suspect]
     Indication: KIDNEY TRANSPLANT REJECTION
     Dosage: 125 MG QD IV
     Route: 042
     Dates: start: 20050630, end: 20050702
  2. THYMOGLOBULIN [Suspect]
     Indication: RENAL TRANSPLANT
     Dosage: 125 MG QD IV
     Route: 042
     Dates: start: 20050630, end: 20050702
  3. THYMOGLOBULIN [Suspect]
     Indication: KIDNEY TRANSPLANT REJECTION
     Dosage: 100 MG QD IV
     Route: 042
     Dates: start: 20050712, end: 20050715
  4. THYMOGLOBULIN [Suspect]
     Indication: RENAL TRANSPLANT
     Dosage: 100 MG QD IV
     Route: 042
     Dates: start: 20050712, end: 20050715
  5. MYCOPHENOLATE MOFETIL [Concomitant]
  6. TACROLIMUS [Concomitant]
  7. PREDNISONE [Concomitant]
  8. NEURONTIN [Concomitant]
  9. AMLODIPINE [Concomitant]
  10. MYCOPHENOLATE MOFETIL [Concomitant]
  11. TACROLIMUS [Concomitant]
  12. PREDNISONE [Concomitant]
  13. NEURONTIN [Concomitant]
  14. AMLODIPINE [Concomitant]

REACTIONS (2)
  - BLADDER CANCER [None]
  - KIDNEY TRANSPLANT REJECTION [None]
